FAERS Safety Report 7795336-0 (Version None)
Quarter: 2011Q4

REPORT INFORMATION
  Report Type: 
  Country: None (occurrence: None)
  Receive Date: 20111004
  Receipt Date: 20111003
  Transmission Date: 20120403
  Serious: Yes (Death, Other)
  Sender: FDA-Public Use
  Company Number: PHFR2011GB03172

PATIENT
  Sex: Male

DRUGS (2)
  1. SUNITINIB MALATE [Suspect]
     Indication: RENAL CELL CARCINOMA
     Dosage: 50 MG DAILY FOR 4 WEEKS THEN 2 WEEKS OFF TREATMENT TO COMPLETE 6 WEEK COURSE
  2. ZOMETA [Suspect]
     Indication: METASTASES TO BONE
     Dosage: 4 MG, EVERY 4 WEEKS

REACTIONS (2)
  - METASTATIC RENAL CELL CARCINOMA [None]
  - OSTEONECROSIS OF JAW [None]
